FAERS Safety Report 19731894 (Version 1)
Quarter: 2021Q3

REPORT INFORMATION
  Report Type: Report from Study
  Country: US (occurrence: US)
  Receive Date: 20210820
  Receipt Date: 20210820
  Transmission Date: 20211014
  Serious: Yes (Death, Hospitalization, Other)
  Sender: FDA-Public Use
  Company Number: US-BRISTOL-MYERS SQUIBB COMPANY-BMS-2021-081917

PATIENT
  Age: 71 Year
  Sex: Female
  Weight: 99.4 kg

DRUGS (2)
  1. DECITABINE. [Suspect]
     Active Substance: DECITABINE
     Indication: ACUTE MYELOID LEUKAEMIA
     Dosage: 160 MILLIGRAM
     Route: 042
     Dates: start: 20210622
  2. IPILIMUMAB [Suspect]
     Active Substance: IPILIMUMAB
     Indication: ACUTE MYELOID LEUKAEMIA
     Dosage: 990 MILLIGRAM
     Route: 042
     Dates: start: 20210622, end: 20210706

REACTIONS (6)
  - Febrile neutropenia [Fatal]
  - Sepsis [Unknown]
  - Pneumonia [Unknown]
  - Subdural haematoma [Unknown]
  - Cardiac failure [Unknown]
  - Hypoxia [Unknown]

NARRATIVE: CASE EVENT DATE: 20210710
